FAERS Safety Report 7134320-7 (Version None)
Quarter: 2010Q4

REPORT INFORMATION
  Report Type: 
  Country: None (occurrence: None)
  Receive Date: 20101203
  Receipt Date: 20101129
  Transmission Date: 20110411
  Serious: Yes (Life-Threatening)
  Sender: FDA-Public Use
  Company Number: JP-ASTRAZENECA-2009AP03131

PATIENT
  Age: 25766 Day
  Sex: Male
  Weight: 70 kg

DRUGS (20)
  1. DIPRIVAN [Suspect]
     Indication: SEDATION
     Route: 042
     Dates: start: 20090429
  2. DIPRIVAN [Suspect]
     Route: 042
     Dates: start: 20090429, end: 20090430
  3. DIPRIVAN [Suspect]
     Route: 042
  4. DIPRIVAN [Suspect]
     Dosage: 0.98 MG/KG/HOUR
     Route: 042
  5. RASENAZOLIN [Concomitant]
     Indication: ENDOCARDITIS
     Dosage: NUMBER OF DIVIDED DOSES UNKNOWN
     Route: 042
     Dates: start: 20090417
  6. RASENAZOLIN [Concomitant]
     Route: 042
  7. MEROPENEM [Concomitant]
     Indication: ENDOCARDITIS
     Dosage: NUMBER OF DIVIDED DOSES UNKNOWN
     Route: 041
     Dates: start: 20090430
  8. VANCOMYCIN HCL [Concomitant]
     Indication: ENDOCARDITIS
     Dosage: NUMBER OF DIVIDED DOSES UNKNOWN
     Route: 041
     Dates: start: 20090430
  9. OMEPRAL INJECTION [Concomitant]
     Dosage: DOSE UNKNOWN
     Route: 041
  10. ELASPOL [Concomitant]
     Dosage: DOSE UNKNOWN
     Route: 041
  11. BUMINATE [Concomitant]
     Dosage: DOSE UNKNOWN
     Route: 041
  12. ALBUMINAR [Concomitant]
     Dosage: DOSE UNKNOWN
     Route: 041
  13. INTRALIPOS10% [Concomitant]
     Dosage: DOSE UNKNOWN
     Route: 041
  14. WARFARIN [Concomitant]
     Indication: ATRIAL FIBRILLATION
     Dosage: STARTED BEFORE 25-MAR-2009
     Route: 048
  15. LECICARBON [Concomitant]
     Indication: CONSTIPATION
     Dosage: AS REQUIRED STARTED BEFORE MAR-2009
     Route: 054
  16. KETOPROFEN [Concomitant]
     Indication: BACK PAIN
     Dosage: AS REQUIRED STARTED BEFORE MAR-2009
     Route: 062
  17. LAC-B [Concomitant]
     Indication: DIARRHOEA
     Route: 048
     Dates: start: 20090421, end: 20090429
  18. OMEPRAL TABLETS [Concomitant]
     Indication: REFLUX OESOPHAGITIS
     Route: 048
     Dates: start: 20090422, end: 20090429
  19. LASIX [Concomitant]
     Indication: OEDEMA DUE TO RENAL DISEASE
     Route: 048
     Dates: start: 20090423
  20. GASCON [Concomitant]
     Indication: GASTRITIS
     Route: 048
     Dates: start: 20090429

REACTIONS (16)
  - DEVICE RELATED INFECTION [None]
  - DYSPNOEA [None]
  - ELECTROCARDIOGRAM QT PROLONGED [None]
  - FUNGAL INFECTION [None]
  - HAEMATURIA [None]
  - HAEMOGLOBIN DECREASED [None]
  - HYPOALBUMINAEMIA [None]
  - INFLAMMATION [None]
  - INTERVERTEBRAL DISC DISORDER [None]
  - MUSCLE ABSCESS [None]
  - PERICARDIAL EFFUSION [None]
  - PERICARDITIS INFECTIVE [None]
  - PLEURAL EFFUSION [None]
  - PROTEIN TOTAL DECREASED [None]
  - TORSADE DE POINTES [None]
  - WHEEZING [None]
